FAERS Safety Report 4596726-X (Version None)
Quarter: 2005Q1

REPORT INFORMATION
  Report Type: 
  Country: None (occurrence: None)
  Receive Date: 20050228
  Receipt Date: 20050212
  Transmission Date: 20050727
  Serious: Yes (Hospitalization, Other)
  Sender: FDA-Public Use
  Company Number: 2004113498

PATIENT
  Age: 46 Year
  Sex: Female

DRUGS (2)
  1. CELEBREX [Suspect]
     Indication: ARTHRALGIA
     Dosage: 200 MG D , ORAL
     Route: 048
     Dates: start: 20000621
  2. LEVOTHYROXINE SODIUM [Concomitant]

REACTIONS (15)
  - BENIGN BREAST NEOPLASM [None]
  - BLOOD CHOLESTEROL INCREASED [None]
  - CARDIAC DISORDER [None]
  - CHEST PAIN [None]
  - CHONDROPATHY [None]
  - DYSPNOEA [None]
  - FALL [None]
  - HEADACHE [None]
  - INFLAMMATION [None]
  - JOINT SPRAIN [None]
  - MENISCUS LESION [None]
  - NAUSEA [None]
  - PROCEDURAL COMPLICATION [None]
  - TREATMENT NONCOMPLIANCE [None]
  - VOMITING [None]
